FAERS Safety Report 18397754 (Version 1)
Quarter: 2020Q4

REPORT INFORMATION
  Report Type: Spontaneous
  Country: US (occurrence: US)
  Receive Date: 20201018
  Receipt Date: 20201018
  Transmission Date: 20210114
  Serious: Yes (Disabling)
  Sender: FDA-Public Use
  Company Number: None

PATIENT
  Age: 36 Year
  Sex: Female
  Weight: 100 kg

DRUGS (1)
  1. PARAGARD T 380A [Suspect]
     Active Substance: COPPER
     Dates: start: 20110518, end: 20181001

REACTIONS (4)
  - Impaired quality of life [None]
  - Autoimmune arthritis [None]
  - Spinal osteoarthritis [None]
  - Dry eye [None]

NARRATIVE: CASE EVENT DATE: 20141015
